FAERS Safety Report 18992041 (Version 3)
Quarter: 2021Q1

REPORT INFORMATION
  Report Type: Spontaneous
  Country: JP (occurrence: JP)
  Receive Date: 20210310
  Receipt Date: 20210317
  Transmission Date: 20210420
  Serious: Yes (Death, Hospitalization)
  Sender: FDA-Public Use
  Company Number: JP-PFIZER INC-2021046358

PATIENT
  Age: 4 Decade
  Sex: Male

DRUGS (3)
  1. CETUXIMAB(GENETICAL RECOMBINATION) [Concomitant]
     Indication: COLON CANCER
     Dosage: UNK
     Route: 065
     Dates: start: 20201209, end: 20201224
  2. MEKTOVI [Suspect]
     Active Substance: BINIMETINIB
     Indication: COLON CANCER
     Dosage: 45 MG, Q12H
     Route: 048
     Dates: start: 20201209, end: 20210105
  3. BRAFTOVI [Suspect]
     Active Substance: ENCORAFENIB
     Indication: COLON CANCER
     Dosage: 300 MG
     Route: 048
     Dates: start: 20201209, end: 20210105

REACTIONS (8)
  - Pyrexia [Unknown]
  - Neoplasm progression [Fatal]
  - General physical health deterioration [Unknown]
  - Blood culture positive [Unknown]
  - Blood albumin decreased [Not Recovered/Not Resolved]
  - Rash [Unknown]
  - Pain [Unknown]
  - Diarrhoea [Recovering/Resolving]

NARRATIVE: CASE EVENT DATE: 20201224
